FAERS Safety Report 4349949-9 (Version None)
Quarter: 2004Q2

REPORT INFORMATION
  Report Type: 
  Country: None (occurrence: None)
  Receive Date: 20040428
  Receipt Date: 20040428
  Transmission Date: 20050107
  Serious: Yes (Hospitalization)
  Sender: FDA-Public Use
  Company Number: None

PATIENT
  Sex: Male
  Weight: 75.5239 kg

DRUGS (1)
  1. RITUXIMAB [Suspect]
     Indication: NON-HODGKIN'S LYMPHOMA
     Dosage: 750MG IVPB X 2 D INTRAVENOUS
     Route: 042
     Dates: start: 20040206, end: 20040209

REACTIONS (2)
  - DIARRHOEA [None]
  - NEUTROPENIA [None]
